FAERS Safety Report 16515679 (Version 1)
Quarter: 2019Q3

REPORT INFORMATION
  Report Type: Spontaneous
  Country: JP (occurrence: JP)
  Receive Date: 20190702
  Receipt Date: 20190702
  Transmission Date: 20191004
  Serious: Yes (Other)
  Sender: FDA-Public Use
  Company Number: JP-PFIZER INC-2019276005

PATIENT
  Age: 70 Year
  Sex: Female

DRUGS (2)
  1. DAIBOFUTO [ACHYRANTHES BIDENTATA ROOT;ACONITUM SPP. PROCESSED ROOT;ANG [Suspect]
     Active Substance: HERBALS
  2. METHOTREXATE SODIUM. [Suspect]
     Active Substance: METHOTREXATE SODIUM
     Indication: RHEUMATOID ARTHRITIS
     Dosage: UNK
     Route: 048

REACTIONS (2)
  - Epstein Barr virus positive mucocutaneous ulcer [Recovered/Resolved]
  - Lymphoproliferative disorder [Recovered/Resolved]
